FAERS Safety Report 5483624-2 (Version None)
Quarter: 2007Q4

REPORT INFORMATION
  Report Type: 
  Country: None (occurrence: None)
  Receive Date: 20071012
  Receipt Date: 20071002
  Transmission Date: 20080405
  Serious: Yes (Death, Hospitalization, Other)
  Sender: FDA-Public Use
  Company Number: CA-AMGEN-US241912

PATIENT
  Age: 8 Year
  Sex: Male
  Weight: 40 kg

DRUGS (19)
  1. ENBREL [Suspect]
     Indication: IDIOPATHIC PNEUMONIA SYNDROME
     Route: 042
     Dates: start: 20070718, end: 20070811
  2. BUSULFAN [Suspect]
  3. CYCLOPHOSPHAMIDE [Suspect]
  4. CYTARABINE [Suspect]
  5. METHYLPREDNISOLONE [Concomitant]
     Dates: end: 20070818
  6. CAPTOPRIL [Concomitant]
  7. CASPOFUNGIN [Concomitant]
  8. CYCLOSPORINE [Concomitant]
  9. DEFIBROTIDE [Concomitant]
  10. ENALAPRILAT [Concomitant]
  11. LASIX [Concomitant]
  12. MEROPENEM [Concomitant]
  13. PHENOBARBITAL TAB [Concomitant]
  14. PIPERACILLIN AND TAZOBACTAM [Concomitant]
  15. RANITIDINE HCL [Concomitant]
  16. URSODIOL [Concomitant]
  17. SIROLIMUS [Concomitant]
  18. VANCOMYCIN [Concomitant]
  19. VITAMIN K [Concomitant]

REACTIONS (25)
  - ALANINE AMINOTRANSFERASE INCREASED [None]
  - ASPARTATE AMINOTRANSFERASE INCREASED [None]
  - BASAL GANGLION DEGENERATION [None]
  - BLOOD CREATININE INCREASED [None]
  - BLOOD UREA INCREASED [None]
  - CARDIO-RESPIRATORY ARREST [None]
  - CONVULSION [None]
  - DEPRESSED LEVEL OF CONSCIOUSNESS [None]
  - ELECTROENCEPHALOGRAM ABNORMAL [None]
  - GASTROINTESTINAL HAEMORRHAGE [None]
  - HYPERBILIRUBINAEMIA [None]
  - HYPERNATRAEMIA [None]
  - HYPERPHOSPHATAEMIA [None]
  - HYPOPHOSPHATAEMIA [None]
  - INTERSTITIAL LUNG DISEASE [None]
  - LOSS OF CONSCIOUSNESS [None]
  - MULTI-ORGAN FAILURE [None]
  - NERVOUS SYSTEM DISORDER [None]
  - NEUROPATHY [None]
  - OESOPHAGEAL INFECTION [None]
  - OESOPHAGITIS [None]
  - PERIPHERAL MOTOR NEUROPATHY [None]
  - PULMONARY HAEMORRHAGE [None]
  - RENAL FAILURE [None]
  - SOMNOLENCE [None]
